FAERS Safety Report 19159359 (Version 1)
Quarter: 2021Q2

REPORT INFORMATION
  Report Type: Report from Study
  Country: US (occurrence: US)
  Receive Date: 20210420
  Receipt Date: 20210420
  Transmission Date: 20210717
  Serious: Yes (Other)
  Sender: FDA-Public Use
  Company Number: US-JAZZ-2021-US-006806

PATIENT
  Sex: Male

DRUGS (4)
  1. XYREM [Suspect]
     Active Substance: SODIUM OXYBATE
     Dosage: DOSE ADJUSTMENT
     Route: 048
     Dates: start: 201708, end: 202009
  2. XYREM [Suspect]
     Active Substance: SODIUM OXYBATE
     Dosage: 5.75 GRAM, FIRST DOSE
     Route: 048
     Dates: start: 202009
  3. XYREM [Suspect]
     Active Substance: SODIUM OXYBATE
     Indication: NARCOLEPSY
     Dosage: 2.25 GRAM, BID
     Route: 048
     Dates: start: 201707, end: 201708
  4. XYREM [Suspect]
     Active Substance: SODIUM OXYBATE
     Dosage: 3.25 GRAM, SECOND DOSE
     Route: 048
     Dates: start: 202009

REACTIONS (2)
  - Blood pressure increased [Unknown]
  - Foot operation [Unknown]
